FAERS Safety Report 4976048-5 (Version None)
Quarter: 2006Q2

REPORT INFORMATION
  Report Type: 
  Country: None (occurrence: None)
  Receive Date: 20060411
  Receipt Date: 20060404
  Transmission Date: 20061013
  Serious: Yes (Hospitalization, Disabling, Other)
  Sender: FDA-Public Use
  Company Number: 2006039330

PATIENT
  Age: 50 Year
  Sex: Male
  Weight: 149.687 kg

DRUGS (5)
  1. NORVASC [Suspect]
     Indication: HYPERTENSION
     Dosage: 10 MG (10 MG, QID, INTERVAL: EVERY DAY); ORAL
     Route: 048
  2. CLONIDINE [Concomitant]
  3. LABETALOL HCL [Concomitant]
  4. FUROSEMIDE [Concomitant]
  5. KLOR-CON [Concomitant]

REACTIONS (7)
  - AORTIC DISSECTION [None]
  - BLOOD PRESSURE DECREASED [None]
  - ECONOMIC PROBLEM [None]
  - IMPAIRED WORK ABILITY [None]
  - RENAL IMPAIRMENT [None]
  - RENAL VESSEL DISORDER [None]
  - TREATMENT NONCOMPLIANCE [None]
